FAERS Safety Report 7940656-X (Version None)
Quarter: 2011Q4

REPORT INFORMATION
  Report Type: 
  Country: None (occurrence: None)
  Receive Date: 20111128
  Receipt Date: 20111118
  Transmission Date: 20120403
  Serious: Yes (Other)
  Sender: FDA-Public Use
  Company Number: JP-JNJFOC-20110511289

PATIENT
  Sex: Female

DRUGS (1)
  1. DOXIL [Suspect]
     Indication: UTERINE CANCER
     Route: 042
     Dates: start: 20110517, end: 20110517

REACTIONS (6)
  - OFF LABEL USE [None]
  - PALPITATIONS [None]
  - CHEST PAIN [None]
  - DYSPNOEA [None]
  - BLOOD PRESSURE INCREASED [None]
  - INFUSION SITE REACTION [None]
